FAERS Safety Report 7426052-2 (Version None)
Quarter: 2011Q2

REPORT INFORMATION
  Report Type: 
  Country: None (occurrence: None)
  Receive Date: 20110420
  Receipt Date: 20110415
  Transmission Date: 20111010
  Serious: Yes (Other)
  Sender: FDA-Public Use
  Company Number: DE-TEVA-259021GER

PATIENT
  Age: 58 Year
  Sex: Male

DRUGS (1)
  1. TAMSULOSIN-RATIOPHARM 0,4 MG HARTKAPSELN [Suspect]
     Indication: PROSTATIC DISORDER
     Dosage: .4 MILLIGRAM;
     Route: 048
     Dates: start: 20101104, end: 20101105

REACTIONS (14)
  - VISUAL ACUITY REDUCED [None]
  - HEADACHE [None]
  - DIZZINESS [None]
  - DIARRHOEA [None]
  - ASTHENIA [None]
  - EPISTAXIS [None]
  - MOVEMENT DISORDER [None]
  - THOUGHT INSERTION [None]
  - HEART RATE DECREASED [None]
  - CHEST DISCOMFORT [None]
  - HEPATIC CIRRHOSIS [None]
  - DISTURBANCE IN ATTENTION [None]
  - CHROMATURIA [None]
  - DECREASED APPETITE [None]
